FAERS Safety Report 4742875-2 (Version None)
Quarter: 2005Q3

REPORT INFORMATION
  Report Type: 
  Country: None (occurrence: None)
  Receive Date: 20050810
  Receipt Date: 20050810
  Transmission Date: 20060218
  Serious: No
  Sender: FDA-Public Use
  Company Number: None

PATIENT
  Age: 59 Year
  Sex: Male
  Weight: 59.8748 kg

DRUGS (2)
  1. LEVAQUIN [Suspect]
     Indication: SINUSITIS
     Dosage: ONCE   DAILY   ORAL
     Route: 048
     Dates: start: 20050719, end: 20050724
  2. CELEXA [Concomitant]

REACTIONS (2)
  - PAIN [None]
  - TENDON DISORDER [None]
